FAERS Safety Report 20832635 (Version 3)
Quarter: 2022Q2

REPORT INFORMATION
  Report Type: Spontaneous
  Country: US (occurrence: US)
  Receive Date: 20220516
  Receipt Date: 20220607
  Transmission Date: 20220721
  Serious: Yes (Other)
  Sender: FDA-Public Use
  Company Number: US-009507513-2205USA002970

PATIENT
  Age: 65 Year
  Sex: Female

DRUGS (11)
  1. PROVENTIL [Suspect]
     Active Substance: ALBUTEROL
     Indication: Asthma
     Dosage: EVERY DAY, TWICE A DAY; CONFIRMS SHE HAS BEEN USING THE PROVENTIL HFA WHEN NEEDED
  2. ALBUTEROL SULFATE [Suspect]
     Active Substance: ALBUTEROL SULFATE
     Dosage: 90 MCG./WHEN NEEDED
     Dates: start: 20220412
  3. ZAFIRLUKAST [Concomitant]
     Active Substance: ZAFIRLUKAST
     Dosage: 1 TABLET TWICE A DAY
     Route: 048
  4. SPIRONOLACTONE AND HYDROCHLOROTHIAZIDE [Concomitant]
     Active Substance: HYDROCHLOROTHIAZIDE\SPIRONOLACTONE
     Dosage: 25/25 (UNITS NOT PROVIDED); ONCE A DAY
  5. BUMETANIDE [Concomitant]
     Active Substance: BUMETANIDE
     Dosage: 1 MG
  6. COLCHICINE [Concomitant]
     Active Substance: COLCHICINE
     Dosage: 0.6 MG; ONCE A DAY
  7. POTASSIUM CHLORIDE [Concomitant]
     Active Substance: POTASSIUM CHLORIDE
     Dosage: ONCE A DAY
  8. ASPIRIN [Concomitant]
     Active Substance: ASPIRIN
     Dosage: ONCE A DAY
  9. MELOXICAM [Concomitant]
     Active Substance: MELOXICAM
     Dosage: 7.5 MG; ONCE A DAY
  10. VITAMIN D2 [Concomitant]
     Active Substance: ERGOCALCIFEROL
     Dosage: 50000 IU^S- ONCE EVERY OTHER WEEK
  11. NYSTATIN [Concomitant]
     Active Substance: NYSTATIN
     Indication: Antifungal prophylaxis
     Dosage: 5 ML TO SWITCH IN MOUTH TO PREVENT THRUSH ONCE A DAY

REACTIONS (6)
  - Bronchiolitis [Recovered/Resolved]
  - Candida infection [Recovered/Resolved]
  - Adverse event [Recovered/Resolved]
  - Drug ineffective [Unknown]
  - Product prescribing issue [Unknown]
  - Product availability issue [Unknown]

NARRATIVE: CASE EVENT DATE: 20220401
